FAERS Safety Report 6305925-8 (Version None)
Quarter: 2009Q3

REPORT INFORMATION
  Report Type: 
  Country: None (occurrence: None)
  Receive Date: 20090812
  Receipt Date: 20090728
  Transmission Date: 20100115
  Serious: Yes (Disabling)
  Sender: FDA-Public Use
  Company Number: PT-PFIZER INC-2009241376

PATIENT
  Age: 44 Year

DRUGS (8)
  1. NEURONTIN [Suspect]
     Indication: BACK PAIN
     Dosage: 300 MG, 1X/DAY
     Route: 048
     Dates: start: 20090609, end: 20090609
  2. NEURONTIN [Suspect]
     Dosage: 300 MG, 3X/DAY
     Route: 048
     Dates: start: 20090610, end: 20090614
  3. CIPRALEX [Concomitant]
     Indication: FIBROMYALGIA
     Dosage: 20 MG, 1X/DAY
     Route: 048
     Dates: start: 20090421
  4. THYRAX [Concomitant]
     Indication: HYPOTHYROIDISM
     Dosage: 0.1 MG, 1X/DAY
     Route: 048
  5. REDUCTIL [Concomitant]
     Indication: OBESITY
     Dosage: 10 MG, 1X/DAY
  6. RISIDON [Concomitant]
     Indication: OBESITY
     Dosage: 500 MG, 2X/DAY
     Route: 048
  7. VALIUM [Concomitant]
     Indication: MUSCLE RELAXANT THERAPY
     Dosage: 10 MG, 2X/DAY
  8. ACETAMINOPHEN [Concomitant]

REACTIONS (2)
  - GAIT DISTURBANCE [None]
  - SCIATICA [None]
